FAERS Safety Report 5207749-1 (Version None)
Quarter: 2006Q4

REPORT INFORMATION
  Report Type: 
  Country: None (occurrence: None)
  Receive Date: 20061030
  Receipt Date: 20060803
  Transmission Date: 20070319
  Serious: Yes (Death, Hospitalization)
  Sender: FDA-Public Use
  Company Number: 2006CT000667

PATIENT
  Age: 57 Year
  Sex: Female
  Weight: 79.3795 kg

DRUGS (12)
  1. VENTAVIS [Suspect]
     Indication: PULMONARY HYPERTENSION
     Dosage: 5 UG; 7XD; INH
     Route: 055
     Dates: start: 20050504, end: 20060802
  2. TYLENOL [Concomitant]
  3. ALDACTONE [Concomitant]
  4. PREDNISONE [Concomitant]
  5. WARFARIN SODIUM [Concomitant]
  6. ALBUTEROL [Concomitant]
  7. TESSALON [Concomitant]
  8. CEFTIN [Concomitant]
  9. NEXIUM [Concomitant]
  10. LASIX [Concomitant]
  11. LEVOXYL [Concomitant]
  12. SITAXSENTAN [Concomitant]

REACTIONS (1)
  - COR PULMONALE [None]
